FAERS Safety Report 5474561-8 (Version None)
Quarter: 2007Q4

REPORT INFORMATION
  Report Type: 
  Country: None (occurrence: None)
  Receive Date: 20071002
  Receipt Date: 20070920
  Transmission Date: 20080405
  Serious: Yes (Other)
  Sender: FDA-Public Use
  Company Number: US-AMGEN-US244298

PATIENT
  Age: 68 Year
  Sex: Female

DRUGS (1)
  1. SENSIPAR [Suspect]
     Indication: HYPERPARATHYROIDISM SECONDARY
     Dates: start: 20060101

REACTIONS (4)
  - CONVULSION [None]
  - DIZZINESS [None]
  - FALL [None]
  - MUSCULAR WEAKNESS [None]
